FAERS Safety Report 21088368 (Version 1)
Quarter: 2022Q3

REPORT INFORMATION
  Report Type: Spontaneous
  Country: FR (occurrence: FR)
  Receive Date: 20220715
  Receipt Date: 20220715
  Transmission Date: 20221027
  Serious: Yes (Other)
  Sender: FDA-Public Use
  Company Number: None

PATIENT
  Age: 40 Year
  Sex: Male
  Weight: 74 kg

DRUGS (2)
  1. LINEZOLID [Suspect]
     Active Substance: LINEZOLID
     Dosage: 600MG X 2
     Route: 048
     Dates: start: 20220512, end: 20220531
  2. CEFEPIME [Suspect]
     Active Substance: CEFEPIME HYDROCHLORIDE
     Dosage: 500MG X 4 ACCORDING TO PHARMACOLOGICAL THERAPEUTIC MONITORING
     Route: 048
     Dates: start: 20220512

REACTIONS (2)
  - Hepatic cytolysis [Not Recovered/Not Resolved]
  - Transaminases increased [Not Recovered/Not Resolved]
